FAERS Safety Report 20963340 (Version 2)
Quarter: 2022Q2

REPORT INFORMATION
  Report Type: Spontaneous
  Country: GB (occurrence: GB)
  Receive Date: 20220615
  Receipt Date: 20220617
  Transmission Date: 20220720
  Serious: Yes (Other)
  Sender: FDA-Public Use
  Company Number: GB-UCBSA-2022032779

PATIENT
  Sex: Female

DRUGS (12)
  1. NEUPRO [Suspect]
     Active Substance: ROTIGOTINE
     Indication: Product used for unknown indication
     Dosage: 6MG
     Route: 062
  2. NEUPRO [Suspect]
     Active Substance: ROTIGOTINE
     Dosage: 8MG
     Route: 062
  3. NEUPRO [Suspect]
     Active Substance: ROTIGOTINE
     Dosage: 10MG
     Route: 062
  4. NEUPRO [Suspect]
     Active Substance: ROTIGOTINE
     Dosage: 8MG
     Route: 062
  5. NEUPRO [Suspect]
     Active Substance: ROTIGOTINE
     Dosage: 6MG
     Route: 062
  6. NEUPRO [Suspect]
     Active Substance: ROTIGOTINE
     Dosage: 5MG
     Route: 062
  7. NEUPRO [Suspect]
     Active Substance: ROTIGOTINE
     Dosage: 4MG
     Route: 062
  8. NEUPRO [Suspect]
     Active Substance: ROTIGOTINE
     Dosage: 3MG
     Route: 062
  9. NEUPRO [Suspect]
     Active Substance: ROTIGOTINE
     Dosage: 2MG
     Route: 062
  10. NEUPRO [Suspect]
     Active Substance: ROTIGOTINE
     Dosage: 1MG
     Route: 062
  11. NEUPRO [Suspect]
     Active Substance: ROTIGOTINE
     Dosage: 1 MILLIGRAM, EV 2 DAYS (QOD)
     Route: 062
  12. BENSERAZIDE HYDROCHLORIDE\LEVODOPA [Concomitant]
     Active Substance: BENSERAZIDE HYDROCHLORIDE\LEVODOPA
     Indication: Product used for unknown indication
     Dosage: UNK

REACTIONS (10)
  - Arrhythmia [Unknown]
  - Paralysis [Unknown]
  - Withdrawal syndrome [Unknown]
  - Musculoskeletal stiffness [Unknown]
  - Heart rate increased [Unknown]
  - Hypertension [Unknown]
  - Tremor [Unknown]
  - Muscle tightness [Unknown]
  - Bedridden [Unknown]
  - Product use issue [Unknown]
